FAERS Safety Report 10265663 (Version 1)
Quarter: 2014Q2

REPORT INFORMATION
  Report Type: Spontaneous
  Country: US (occurrence: US)
  Receive Date: 20140627
  Receipt Date: 20140627
  Transmission Date: 20141212
  Serious: No
  Sender: FDA-Public Use
  Company Number: US-TEVA-491105USA

PATIENT
  Sex: 0

DRUGS (4)
  1. TREANDA [Suspect]
     Indication: DIFFUSE LARGE B-CELL LYMPHOMA RECURRENT
     Dates: start: 20140207
  2. TREANDA [Suspect]
     Dosage: CYCLES 2-3
  3. TREANDA [Suspect]
     Dosage: CYCLE 4
     Dates: end: 20140603
  4. RITUXIMAB [Concomitant]
     Indication: DIFFUSE LARGE B-CELL LYMPHOMA RECURRENT

REACTIONS (2)
  - Chest pain [Recovering/Resolving]
  - Platelet count decreased [Unknown]
